FAERS Safety Report 7102607-X (Version None)
Quarter: 2010Q4

REPORT INFORMATION
  Report Type: 
  Country: None (occurrence: None)
  Receive Date: 20101115
  Receipt Date: 20101112
  Transmission Date: 20110411
  Serious: Yes (Other)
  Sender: FDA-Public Use
  Company Number: A0892239A

PATIENT
  Age: 72 Year
  Sex: Male

DRUGS (20)
  1. AVANDIA [Suspect]
     Dosage: 4MG PER DAY
     Route: 048
     Dates: start: 20030401, end: 20080214
  2. OMEPRAZOLE [Concomitant]
  3. TYLENOL [Concomitant]
  4. VERAPAMIL [Concomitant]
  5. GLIPIZIDE [Concomitant]
  6. DICYCLOMINE [Concomitant]
  7. ONE A DAY VITAMINS [Concomitant]
  8. HYDROCHLOROTHIAZIDE [Concomitant]
  9. FISH OIL [Concomitant]
  10. FERROUS SULFATE [Concomitant]
  11. DOXAZOSIN MESYLATE [Concomitant]
  12. FLUOXETINE [Concomitant]
  13. GABAPENTIN [Concomitant]
  14. SIMVASTATIN [Concomitant]
  15. ALPRAZOLAM [Concomitant]
  16. PLAVIX [Concomitant]
  17. VICODIN [Concomitant]
  18. COMBIVENT [Concomitant]
  19. FORADIL [Concomitant]
  20. INTAL [Concomitant]

REACTIONS (2)
  - CEREBROVASCULAR ACCIDENT [None]
  - DYSMORPHISM [None]
